FAERS Safety Report 8838885 (Version 2)
Quarter: 2012Q4

REPORT INFORMATION
  Report Type: 
  Country: GB (occurrence: GB)
  Receive Date: 20121015
  Receipt Date: 20121212
  Transmission Date: 20130627
  Serious: Yes (Life-Threatening, Hospitalization, Other)
  Sender: FDA-Public Use
  Company Number: GB-AMGEN-GBRSP2012064639

PATIENT
  Age: 57 Year
  Sex: Female
  Weight: 116 kg

DRUGS (4)
  1. ENBREL [Suspect]
     Indication: RHEUMATOID ARTHRITIS
     Dosage: 50mg unit dose
     Route: 058
     Dates: start: 20120501, end: 201208
  2. METHOTREXATE [Concomitant]
     Indication: RHEUMATOID ARTHRITIS
     Dosage: 15 mg, UNK
     Route: 058
     Dates: start: 2006
  3. METHOTREXATE [Concomitant]
     Dosage: 15 mg, UNK
     Route: 058
     Dates: start: 201208
  4. ETORICOXIB [Concomitant]
     Indication: RHEUMATOID ARTHRITIS
     Dosage: 90 UNK, UNK
     Dates: start: 2011

REACTIONS (7)
  - Cholelithiasis [Unknown]
  - Pulmonary embolism [Recovered/Resolved]
  - Pneumonitis [Recovered/Resolved]
  - Thyroid neoplasm [Unknown]
  - Sinus tachycardia [Unknown]
  - Hiatus hernia [Unknown]
  - Pneumonitis [Recovered/Resolved]
